FAERS Safety Report 20625833 (Version 5)
Quarter: 2023Q1

REPORT INFORMATION
  Report Type: Report from Study
  Country: JP (occurrence: JP)
  Receive Date: 20220323
  Receipt Date: 20230113
  Transmission Date: 20230417
  Serious: Yes (Life-Threatening)
  Sender: FDA-Public Use
  Company Number: JP-INSMED INCORPORATED-2021-09551-JPAA

PATIENT
  Age: 73 Year
  Sex: Female
  Weight: 40 kg

DRUGS (8)
  1. ARIKAYCE [Suspect]
     Active Substance: AMIKACIN
     Indication: Mycobacterium avium complex infection
     Dosage: 590 MILLIGRAM, QD
     Route: 055
     Dates: start: 20210831, end: 20210914
  2. RIFAMPIN [Concomitant]
     Active Substance: RIFAMPIN
     Indication: Mycobacterium avium complex infection
     Dosage: 450 MILLIGRAM, QD
     Route: 048
     Dates: start: 20181120
  3. SITAFLOXACIN [Concomitant]
     Active Substance: SITAFLOXACIN
     Indication: Mycobacterial infection
     Dosage: 100 MILLIGRAM, QD
     Route: 048
     Dates: start: 20181204
  4. AZITHROMYCIN DIHYDRATE [Concomitant]
     Active Substance: AZITHROMYCIN DIHYDRATE
     Indication: Mycobacterial infection
     Dosage: 250 MILLIGRAM, QD
     Route: 048
     Dates: start: 20210611
  5. DEXTROMETHORPHAN HYDROBROMIDE [Concomitant]
     Active Substance: DEXTROMETHORPHAN HYDROBROMIDE
     Indication: Mycobacterial infection
     Dosage: 15 MILLIGRAM, TID
     Route: 048
     Dates: start: 20180911
  6. ROSUVASTATIN [Concomitant]
     Active Substance: ROSUVASTATIN
     Indication: Product used for unknown indication
     Dosage: 2.5 MILLIGRAM, QD
     Route: 048
  7. MINODRONIC ACID [Concomitant]
     Active Substance: MINODRONIC ACID
     Indication: Product used for unknown indication
     Dosage: 50 MILLIGRAM, MONTHLY
     Route: 048
  8. CLARITHROMYCIN [Concomitant]
     Active Substance: CLARITHROMYCIN
     Indication: Mycobacterium avium complex infection
     Dosage: UNK
     Route: 065

REACTIONS (3)
  - Interstitial lung disease [Recovering/Resolving]
  - Mouth ulceration [Recovering/Resolving]
  - Glossitis [Unknown]

NARRATIVE: CASE EVENT DATE: 20210903
